FAERS Safety Report 16311103 (Version 2)
Quarter: 2019Q2

REPORT INFORMATION
  Report Type: Spontaneous
  Country: BR (occurrence: BR)
  Receive Date: 20190514
  Receipt Date: 20190520
  Transmission Date: 20190711
  Serious: Yes (Other)
  Sender: FDA-Public Use
  Company Number: BR-GLAXOSMITHKLINE-BR2019GSK070896

PATIENT
  Age: 23 Month
  Sex: Male

DRUGS (3)
  1. ZINNAT [Suspect]
     Active Substance: CEFUROXIME
     Indication: RESPIRATORY TRACT INFECTION
     Dosage: 4 ML, BID
     Route: 048
  2. ZINNAT [Suspect]
     Active Substance: CEFUROXIME
     Indication: EAR INFECTION
  3. ZINNAT [Suspect]
     Active Substance: CEFUROXIME
     Indication: SINUSITIS

REACTIONS (7)
  - Pyrexia [Unknown]
  - Pneumonia [Unknown]
  - Dysphagia [Unknown]
  - Concomitant disease aggravated [Unknown]
  - Vomiting [Unknown]
  - Drug ineffective [Unknown]
  - Underdose [Unknown]
